FAERS Safety Report 5412252-X (Version None)
Quarter: 2007Q3

REPORT INFORMATION
  Report Type: 
  Country: None (occurrence: None)
  Receive Date: 20070810
  Receipt Date: 20070810
  Transmission Date: 20080115
  Serious: Yes (Death)
  Sender: FDA-Public Use
  Company Number: None

PATIENT
  Age: 53 Year
  Sex: Male
  Weight: 65.318 kg

DRUGS (1)
  1. IRON DEXTRAN [Suspect]
     Indication: ANAEMIA
     Dosage: 50MG QWEEK IV
     Route: 042
     Dates: start: 20070219, end: 20070306

REACTIONS (5)
  - ANAPHYLACTIC REACTION [None]
  - CARDIO-RESPIRATORY ARREST [None]
  - LOSS OF CONSCIOUSNESS [None]
  - RESPIRATORY DISTRESS [None]
  - SWELLING FACE [None]
